FAERS Safety Report 14999819 (Version 1)
Quarter: 2018Q2

REPORT INFORMATION
  Report Type: Spontaneous
  Country: US (occurrence: US)
  Receive Date: 20180612
  Receipt Date: 20180612
  Transmission Date: 20180711
  Serious: Yes (Hospitalization)
  Sender: FDA-Public Use
  Company Number: PHEH2018US022152

PATIENT
  Age: 56 Year
  Sex: Male
  Weight: 90.7 kg

DRUGS (2)
  1. COSENTYX [Suspect]
     Active Substance: SECUKINUMAB
     Indication: RHEUMATOID ARTHRITIS
  2. COSENTYX [Suspect]
     Active Substance: SECUKINUMAB
     Indication: PSORIATIC ARTHROPATHY
     Dosage: UNK
     Route: 065
     Dates: start: 201712, end: 20180216

REACTIONS (5)
  - Pyrexia [Unknown]
  - Sepsis [Unknown]
  - Cellulitis [Unknown]
  - Rash pustular [Unknown]
  - Neutropenia [Unknown]

NARRATIVE: CASE EVENT DATE: 20180216
